FAERS Safety Report 13752887 (Version 1)
Quarter: 2017Q3

REPORT INFORMATION
  Report Type: Spontaneous
  Country: US (occurrence: US)
  Receive Date: 20170713
  Receipt Date: 20170713
  Transmission Date: 20171127
  Serious: Yes (Hospitalization)
  Sender: FDA-Public Use
  Company Number: None

PATIENT
  Age: 80 Year
  Sex: Male
  Weight: 88.53 kg

DRUGS (1)
  1. APIXABAN [Suspect]
     Active Substance: APIXABAN
     Indication: PULMONARY EMBOLISM
     Route: 048
     Dates: start: 20170706

REACTIONS (4)
  - Oesophageal candidiasis [None]
  - Oral candidiasis [None]
  - Oesophageal hypomotility [None]
  - Dysphagia [None]

NARRATIVE: CASE EVENT DATE: 20170711
